FAERS Safety Report 15834507 (Version 2)
Quarter: 2019Q1

REPORT INFORMATION
  Report Type: Spontaneous
  Country: US (occurrence: US)
  Receive Date: 20190116
  Receipt Date: 20190118
  Transmission Date: 20190417
  Serious: Yes (Hospitalization)
  Sender: FDA-Public Use
  Company Number: US-BAYER-2019-007548

PATIENT
  Age: 39 Year
  Sex: Female

DRUGS (1)
  1. SKYLA [Suspect]
     Active Substance: LEVONORGESTREL
     Dosage: 14 MCG/24HR, CONT
     Route: 015
     Dates: start: 20170916, end: 2018

REACTIONS (3)
  - Cholecystitis chronic [Recovered/Resolved]
  - Cholelithiasis [Recovered/Resolved]
  - Pancreatitis [None]

NARRATIVE: CASE EVENT DATE: 201710
